FAERS Safety Report 20911723 (Version 2)
Quarter: 2022Q2

REPORT INFORMATION
  Report Type: Other
  Country: JP (occurrence: JP)
  Receive Date: 20220603
  Receipt Date: 20220606
  Transmission Date: 20220721
  Serious: Yes (Other)
  Sender: FDA-Public Use
  Company Number: JP-CHUGAI-2022020078

PATIENT
  Age: 57 Year
  Sex: Male
  Weight: 66.6 kg

DRUGS (4)
  1. XELODA [Suspect]
     Active Substance: CAPECITABINE
     Indication: Colon cancer
     Route: 048
  2. OXALIPLATIN [Concomitant]
     Active Substance: OXALIPLATIN
     Indication: Colon cancer
     Route: 041
  3. APIXABAN [Concomitant]
     Active Substance: APIXABAN
     Indication: Renal vein thrombosis
     Dosage: 5 MILLIGRAM, QD
     Route: 048
  4. ENOXAPARIN SODIUM [Concomitant]
     Active Substance: ENOXAPARIN SODIUM
     Indication: Renal vein thrombosis
     Route: 065

REACTIONS (2)
  - Gastrointestinal toxicity [Unknown]
  - Neutrophil count decreased [Unknown]
